FAERS Safety Report 13533215 (Version 3)
Quarter: 2018Q3

REPORT INFORMATION
  Report Type: Report from Study
  Country: US (occurrence: US)
  Receive Date: 20170510
  Receipt Date: 20180815
  Transmission Date: 20181010
  Serious: Yes (Death, Hospitalization)
  Sender: FDA-Public Use
  Company Number: US-KERYX BIOPHARMACEUTICALS, INC.-2017US002814

PATIENT
  Age: 39 Year
  Sex: Male

DRUGS (1)
  1. AURYXIA [Suspect]
     Active Substance: TETRAFERRIC TRICITRATE DECAHYDRATE
     Indication: HYPERPHOSPHATAEMIA
     Dosage: 6 G (6 TAB), QD
     Dates: start: 20161207, end: 20170110

REACTIONS (2)
  - Hospitalisation [Unknown]
  - Sepsis [Fatal]

NARRATIVE: CASE EVENT DATE: 20170110
